FAERS Safety Report 9363082 (Version 2)
Quarter: 2013Q3

REPORT INFORMATION
  Report Type: Spontaneous
  Country: US (occurrence: US)
  Receive Date: 20130624
  Receipt Date: 20130816
  Transmission Date: 20140515
  Serious: No
  Sender: FDA-Public Use
  Company Number: US-PFIZER INC-2013187537

PATIENT
  Age: 52 Year
  Sex: Male

DRUGS (2)
  1. EFFEXOR XR [Suspect]
     Indication: ANXIETY
     Dosage: 37.5 MG, UNK
     Dates: start: 20070423
  2. EFFEXOR XR [Suspect]
     Dosage: 75 MG, UNK
     Dates: end: 2013

REACTIONS (7)
  - Rash [Recovered/Resolved]
  - Neck pain [Unknown]
  - Upper limb fracture [Unknown]
  - Muscle tightness [Unknown]
  - Hypokinesia [Unknown]
  - Muscle twitching [Unknown]
  - Myalgia [Unknown]
